FAERS Safety Report 7023407-5 (Version None)
Quarter: 2010Q3

REPORT INFORMATION
  Report Type: 
  Country: None (occurrence: None)
  Receive Date: 20100930
  Receipt Date: 20100812
  Transmission Date: 20110219
  Serious: Yes (Other)
  Sender: FDA-Public Use
  Company Number: US-ELI_LILLY_AND_COMPANY-US201006002821

PATIENT
  Sex: Female

DRUGS (10)
  1. FORTEO [Suspect]
     Indication: OSTEOPOROSIS
     Dosage: 20 UG, DAILY (1/D)
     Dates: start: 20090101
  2. AMBIEN [Concomitant]
     Indication: INSOMNIA
  3. ZOFRAN [Concomitant]
     Indication: NAUSEA
  4. EFFEXOR XR [Concomitant]
     Indication: DEPRESSION
  5. MIRAPEX [Concomitant]
     Indication: RESTLESS LEGS SYNDROME
  6. ATENOLOL [Concomitant]
     Indication: HYPERTENSION
  7. ALDACTAZIDE [Concomitant]
     Indication: HYPERTENSION
  8. ATARAX [Concomitant]
     Indication: PRURITUS
  9. OMEPRAZOLE [Concomitant]
     Indication: GASTROOESOPHAGEAL REFLUX DISEASE
  10. NIFEREX FORTE [Concomitant]
     Indication: ANAEMIA

REACTIONS (7)
  - ALANINE AMINOTRANSFERASE INCREASED [None]
  - ASPARTATE AMINOTRANSFERASE INCREASED [None]
  - BILIRUBIN CONJUGATED INCREASED [None]
  - BLOOD ALKALINE PHOSPHATASE INCREASED [None]
  - COELIAC DISEASE [None]
  - LIVER DISORDER [None]
  - MALAISE [None]
